FAERS Safety Report 17220805 (Version 3)
Quarter: 2021Q3

REPORT INFORMATION
  Report Type: Report from Study
  Country: US (occurrence: US)
  Receive Date: 20191231
  Receipt Date: 20210819
  Transmission Date: 20211014
  Serious: Yes (Life-Threatening, Hospitalization)
  Sender: FDA-Public Use
  Company Number: US-PFIZER INC-2019559152

PATIENT
  Age: 3 Year
  Sex: Male
  Weight: 23 kg

DRUGS (20)
  1. VINCRISTINE SULFATE. [Suspect]
     Active Substance: VINCRISTINE SULFATE
     Indication: ACUTE LYMPHOCYTIC LEUKAEMIA
     Dosage: 1.14 MG, ONE TIME (DAYS 43 AND 50)
     Route: 042
     Dates: start: 20190821
  2. INCB018424 [Suspect]
     Active Substance: RUXOLITINIB
     Dosage: 35 MG, BID (DAYS 1?10, 21?30, AND 41?50)
     Route: 048
     Dates: start: 20191220
  3. CYCLOPHOSPHAMIDE. [Suspect]
     Active Substance: CYCLOPHOSPHAMIDE
     Indication: ACUTE LYMPHOCYTIC LEUKAEMIA
     Dosage: 760 MG, ONCE (DAY 29)
     Route: 042
     Dates: start: 20190924
  4. VINCRISTINE SULFATE. [Suspect]
     Active Substance: VINCRISTINE SULFATE
     Dosage: 1.14 MG, ONE TIME (DAYS 1, 11. 21, 31, AND 41)
     Route: 042
     Dates: start: 20191211
  5. CYTARABINE. [Suspect]
     Active Substance: CYTARABINE
     Indication: ACUTE LYMPHOCYTIC LEUKAEMIA
     Dosage: 57 MG, (DAYS 29?32 AND 36?39)
     Route: 042
     Dates: start: 20190924
  6. METHOTREXATE SODIUM. [Suspect]
     Active Substance: METHOTREXATE SODIUM
     Dosage: 12 MG ONE TIME (DAYS 1, AND 31)
     Route: 037
     Dates: start: 20191107, end: 20191206
  7. METHOTREXATE SODIUM. [Suspect]
     Active Substance: METHOTREXATE SODIUM
     Dosage: STARTING DOSE 100 MG/M2 AND ESCALATE BY 50MG/M2/DOSE ? DAY 1, 11, 21, 31 AND 41
     Route: 042
     Dates: start: 20191211
  8. ASPARAGINASE [Suspect]
     Active Substance: ASPARAGINASE
     Indication: ACUTE LYMPHOCYTIC LEUKAEMIA
     Dosage: 19000 IU, THREE TIMES PER WEEK X2 WEEKS, INJECTION
     Route: 030
     Dates: start: 20190827
  9. CYPROHEPTADINE. [Concomitant]
     Active Substance: CYPROHEPTADINE
     Dosage: UNK
     Dates: start: 20191209
  10. VINCRISTINE SULFATE. [Suspect]
     Active Substance: VINCRISTINE SULFATE
     Dosage: 1.14 MG, ONE TIME (DAYS 1, 11. 21, 31, AND 41)
     Route: 042
     Dates: start: 20191107, end: 20191206
  11. DEXAMETHASONE. [Suspect]
     Active Substance: DEXAMETHASONE
     Indication: ACUTE LYMPHOCYTIC LEUKAEMIA
     Dosage: 4 MG, BID (DAYS 1?7 AND 15?21), TABLET
     Route: 048
     Dates: start: 20190821
  12. METHOTREXATE SODIUM. [Suspect]
     Active Substance: METHOTREXATE SODIUM
     Indication: ACUTE LYMPHOCYTIC LEUKAEMIA
     Dosage: 12 MG ONE TIME (DAYS 1, 29 AND 36)
     Route: 037
     Dates: start: 20190821
  13. METHOTREXATE SODIUM. [Suspect]
     Active Substance: METHOTREXATE SODIUM
     Dosage: 12 MG ONE TIME (DAYS 1, AND 31)
     Route: 037
     Dates: start: 20191211
  14. ASPARAGINASE [Suspect]
     Active Substance: ASPARAGINASE
     Dosage: 19000 IU, DAYS 2 AND 22 PER PROTOCOL THREE TIMES PER WEEK X2 WEEKS FOR EACH DOSE
     Route: 030
     Dates: start: 20191108
  15. METHOTREXATE SODIUM. [Suspect]
     Active Substance: METHOTREXATE SODIUM
     Indication: ACUTE LYMPHOCYTIC LEUKAEMIA
     Dosage: STARTING DOSE 100 MG/M2 AND ESCALATE BY 50MG/M2/DOSE ? DAY 1, 11, 21, 31 AND 41
     Route: 042
     Dates: start: 20191107, end: 20191206
  16. THIOGUANINE [Suspect]
     Active Substance: THIOGUANINE
     Indication: ACUTE LYMPHOCYTIC LEUKAEMIA
     Dosage: 45 MG, (DAYS 29?42), TABLET
     Route: 048
     Dates: start: 20190924
  17. BACTRIM [Concomitant]
     Active Substance: SULFAMETHOXAZOLE\TRIMETHOPRIM
     Dosage: UNK
     Dates: start: 20191209
  18. INCB018424 [Suspect]
     Active Substance: RUXOLITINIB
     Dosage: 35 MG, BID (DAYS 1?10, 21?30, AND 41?50)
     Route: 048
     Dates: start: 20191127, end: 20191206
  19. LORAZEPAM. [Concomitant]
     Active Substance: LORAZEPAM
     Dosage: UNK
     Dates: start: 20191209, end: 20191209
  20. INCB018424 [Suspect]
     Active Substance: RUXOLITINIB
     Indication: ACUTE LYMPHOCYTIC LEUKAEMIA
     Dosage: 35 MG, BID (DAYS 1?14 AND 29?42), TABLET
     Route: 048
     Dates: start: 20190821

REACTIONS (11)
  - Stomatitis [Recovered/Resolved]
  - Vomiting [Recovered/Resolved]
  - Constipation [Recovered/Resolved]
  - Lethargy [Recovered/Resolved]
  - Dehydration [Recovered/Resolved]
  - Abdominal pain [Recovered/Resolved]
  - Constipation [Unknown]
  - Hypoglycaemia [Recovered/Resolved]
  - Constipation [Recovered/Resolved]
  - Decreased appetite [Recovering/Resolving]
  - Dehydration [Recovered/Resolved]

NARRATIVE: CASE EVENT DATE: 20191015
